FAERS Safety Report 26145490 (Version 1)
Quarter: 2025Q4

REPORT INFORMATION
  Report Type: Spontaneous
  Country: US (occurrence: None)
  Receive Date: 20251210
  Receipt Date: 20251210
  Transmission Date: 20260117
  Serious: No
  Sender: FDA-CTU
  Company Number: None

PATIENT
  Age: 74 Year
  Sex: Male
  Weight: 85.5 kg

DRUGS (6)
  1. REPATHA [Suspect]
     Active Substance: EVOLOCUMAB
     Indication: Blood cholesterol increased
     Dosage: OTHER QUANTITY : 6 INJECTION(S);?OTHER FREQUENCY : EVERY 14 DAYS;
     Route: 058
     Dates: start: 20251120, end: 20251203
  2. ZETIA [Concomitant]
     Active Substance: EZETIMIBE
  3. ASPIRIN [Concomitant]
     Active Substance: ASPIRIN
  4. POTASSIUM [Concomitant]
     Active Substance: POTASSIUM
  5. Vitamin D3/K [Concomitant]
  6. VITAMIN C [Concomitant]
     Active Substance: ASCORBIC ACID

REACTIONS (3)
  - Amnesia [None]
  - Confusional state [None]
  - Mental impairment [None]

NARRATIVE: CASE EVENT DATE: 20251201
